FAERS Safety Report 7769962-9 (Version None)
Quarter: 2011Q3

REPORT INFORMATION
  Report Type: 
  Country: None (occurrence: None)
  Receive Date: 20110922
  Receipt Date: 20110916
  Transmission Date: 20111222
  Serious: Yes (Other)
  Sender: FDA-Public Use
  Company Number: JP-GLAXOSMITHKLINE-B0746087A

PATIENT
  Sex: Female

DRUGS (1)
  1. SEREVENT [Suspect]
     Indication: DYSPNOEA
     Dosage: 100MCG PER DAY
     Route: 055
     Dates: start: 20110903

REACTIONS (1)
  - GLYCOSYLATED HAEMOGLOBIN INCREASED [None]
